FAERS Safety Report 15750469 (Version 1)
Quarter: 2018Q4

REPORT INFORMATION
  Report Type: Report from Study
  Country: US (occurrence: US)
  Receive Date: 20181221
  Receipt Date: 20181221
  Transmission Date: 20190205
  Serious: Yes (Hospitalization, Other)
  Sender: FDA-Public Use
  Company Number: US-ACTELION-A-NJ2018-168409

PATIENT
  Age: 7 Month
  Sex: Male

DRUGS (7)
  1. TRACLEER [Suspect]
     Active Substance: BOSENTAN
     Indication: PULMONARY HYPERTENSION
     Dosage: 62.5 MG, QD
     Route: 048
  2. TRACLEER [Suspect]
     Active Substance: BOSENTAN
     Dosage: 7.5 MG, UNK
     Route: 048
  3. TRACLEER [Suspect]
     Active Substance: BOSENTAN
     Dosage: 31 MG, QD
     Route: 048
  4. TRACLEER [Suspect]
     Active Substance: BOSENTAN
     Dosage: 4.68 MG, UNK
     Route: 048
     Dates: start: 20181108
  5. TRACLEER [Suspect]
     Active Substance: BOSENTAN
     Dosage: 7.5 MG, BID
     Route: 048
     Dates: start: 20180130
  6. TRACLEER [Suspect]
     Active Substance: BOSENTAN
     Dosage: 9.375 MG, BID
     Route: 048
     Dates: start: 20181023
  7. REVATIO [Concomitant]
     Active Substance: SILDENAFIL CITRATE

REACTIONS (6)
  - Aspartate aminotransferase abnormal [Recovered/Resolved]
  - Blood alkaline phosphatase [Recovered/Resolved]
  - Erythema [Unknown]
  - Liver function test increased [Recovered/Resolved]
  - Pulmonary arterial hypertension [Unknown]
  - Flushing [Unknown]

NARRATIVE: CASE EVENT DATE: 201810
